FAERS Safety Report 6115945-4 (Version None)
Quarter: 2009Q1

REPORT INFORMATION
  Report Type: 
  Country: None (occurrence: None)
  Receive Date: 20090314
  Receipt Date: 20081208
  Transmission Date: 20090719
  Serious: No
  Sender: FDA-Public Use
  Company Number: PR-ABBOTT-08P-131-0489392-00

PATIENT
  Sex: Female
  Weight: 74.002 kg

DRUGS (8)
  1. HUMIRA [Suspect]
     Indication: RHEUMATOID ARTHRITIS
     Route: 058
  2. FROVATRIPTAN SUCCINATE MONOHYDRATE [Concomitant]
     Indication: MIGRAINE
     Route: 048
  3. AXOTAL [Concomitant]
     Indication: MIGRAINE
     Route: 048
  4. RANITIDINE [Concomitant]
     Indication: GASTRITIS
     Dosage: NIGHTLY
     Route: 048
  5. OMEPRAZOLE [Concomitant]
     Indication: GASTRITIS
     Dosage: 2 CAPS EVERY MORNING
     Route: 048
  6. MELOXICAM [Concomitant]
     Indication: RHEUMATOID ARTHRITIS
     Route: 048
  7. BACLOFEN [Concomitant]
     Indication: RHEUMATOID ARTHRITIS
     Route: 048
  8. ULTRACET [Concomitant]
     Indication: RHEUMATOID ARTHRITIS
     Dosage: EVERY 4-6 HOURS
     Route: 048

REACTIONS (5)
  - CELLULITIS [None]
  - INJECTION SITE ERYTHEMA [None]
  - INJECTION SITE INFLAMMATION [None]
  - INJECTION SITE PAIN [None]
  - INJECTION SITE REACTION [None]
